FAERS Safety Report 17876951 (Version 2)
Quarter: 2020Q2

REPORT INFORMATION
  Report Type: Spontaneous
  Country: US (occurrence: US)
  Receive Date: 20200609
  Receipt Date: 20200617
  Transmission Date: 20200714
  Serious: Yes (Other)
  Sender: FDA-Public Use
  Company Number: US-ABBVIE-20K-163-3433303-00

PATIENT
  Age: 5 Year
  Sex: Female

DRUGS (6)
  1. VALPROATE SALT NOT SPECIFIED [Suspect]
     Active Substance: VALPROATE SODIUM
     Indication: SEIZURE
     Route: 065
  2. ETHOSUXIMIDE. [Concomitant]
     Active Substance: ETHOSUXIMIDE
     Indication: SEIZURE
  3. CARNITINE [Concomitant]
     Active Substance: CARNITINE
     Indication: PRODUCT USED FOR UNKNOWN INDICATION
  4. ETHOSUXIMIDE. [Concomitant]
     Active Substance: ETHOSUXIMIDE
     Indication: PETIT MAL EPILEPSY
  5. CALCIUM [Concomitant]
     Active Substance: CALCIUM
     Indication: PRODUCT USED FOR UNKNOWN INDICATION
  6. VALPROATE SALT NOT SPECIFIED [Interacting]
     Active Substance: VALPROATE SODIUM
     Indication: PETIT MAL EPILEPSY

REACTIONS (7)
  - Ataxia [Recovering/Resolving]
  - Hypotonia [Recovering/Resolving]
  - Dyskinesia [Recovering/Resolving]
  - Brain injury [Recovering/Resolving]
  - Posture abnormal [Recovering/Resolving]
  - Drug interaction [Recovering/Resolving]
  - Chorea [Recovering/Resolving]
